FAERS Safety Report 5586867-2 (Version None)
Quarter: 2008Q1

REPORT INFORMATION
  Report Type: 
  Country: None (occurrence: None)
  Receive Date: 20080108
  Receipt Date: 20080108
  Transmission Date: 20080703
  Serious: Yes (Other)
  Sender: FDA-Public Use
  Company Number: None

PATIENT
  Age: 42 Year
  Sex: Female
  Weight: 49.8957 kg

DRUGS (2)
  1. FERRLECIT [Suspect]
     Indication: IRON DEFICIENCY
     Dosage: 250 MG
     Dates: start: 20071221, end: 20071221
  2. FERRLECIT [Suspect]
     Indication: MENORRHAGIA
     Dosage: 250 MG
     Dates: start: 20071221, end: 20071221

REACTIONS (3)
  - CHEST DISCOMFORT [None]
  - RASH [None]
  - URTICARIA [None]
